FAERS Safety Report 10166492 (Version 1)
Quarter: 2014Q2

REPORT INFORMATION
  Report Type: Spontaneous
  Country: US (occurrence: US)
  Receive Date: 20140512
  Receipt Date: 20140512
  Transmission Date: 20141212
  Serious: No
  Sender: FDA-Public Use
  Company Number: US-MYLANLABS-2014S1007376

PATIENT
  Sex: Male

DRUGS (4)
  1. MORPHINE SULFATE EXTENDED-RELEASE TABLETS [Suspect]
     Indication: SPINAL PAIN
     Route: 048
     Dates: start: 2012
  2. GABAPENTIN [Concomitant]
     Route: 048
  3. IBUPROFEN [Concomitant]
     Route: 048
  4. DIAZEPAM [Concomitant]
     Route: 048

REACTIONS (4)
  - Drug ineffective [Not Recovered/Not Resolved]
  - Pain [Not Recovered/Not Resolved]
  - Gait disturbance [Not Recovered/Not Resolved]
  - Insomnia [Not Recovered/Not Resolved]
